FAERS Safety Report 16608881 (Version 1)
Quarter: 2019Q3

REPORT INFORMATION
  Report Type: Spontaneous
  Country: US (occurrence: US)
  Receive Date: 20190719
  Receipt Date: 20190719
  Transmission Date: 20191004
  Serious: No
  Sender: FDA-Public Use
  Company Number: None

PATIENT
  Age: 34 Year
  Sex: Female
  Weight: 90 kg

DRUGS (1)
  1. IC GABAPENTIN 100 MG CAPSULE [Suspect]
     Active Substance: GABAPENTIN
     Indication: BURNING SENSATION
     Dosage: ?          QUANTITY:1 CAPSULE(S);?
     Route: 048
     Dates: start: 20190703

REACTIONS (1)
  - Contusion [None]

NARRATIVE: CASE EVENT DATE: 20190719
